FAERS Safety Report 16437690 (Version 1)
Quarter: 2019Q2

REPORT INFORMATION
  Report Type: Spontaneous
  Country: GB (occurrence: GB)
  Receive Date: 20190616
  Receipt Date: 20190616
  Transmission Date: 20190711
  Serious: Yes (Hospitalization)
  Sender: FDA-Public Use
  Company Number: GB-DEXPHARM-20190425

PATIENT
  Age: 86 Year
  Sex: Male

DRUGS (9)
  1. ATENOLOL. [Concomitant]
     Active Substance: ATENOLOL
  2. PERINDOPRIL [Concomitant]
     Active Substance: PERINDOPRIL
  3. TAMSULOSIN [Concomitant]
     Active Substance: TAMSULOSIN
  4. FINASTERIDE. [Concomitant]
     Active Substance: FINASTERIDE
  5. DONEPEZIL. [Concomitant]
     Active Substance: DONEPEZIL
  6. ALFACALCIDOL [Concomitant]
     Active Substance: ALFACALCIDOL
  7. OMEPRAZOLE. [Suspect]
     Active Substance: OMEPRAZOLE
  8. CARBIMAZOLE [Concomitant]
     Active Substance: CARBIMAZOLE
  9. CLOPIDOGREL [Concomitant]
     Active Substance: CLOPIDOGREL BISULFATE

REACTIONS (2)
  - Hypocalcaemia [Recovered/Resolved]
  - Hypomagnesaemia [Recovered/Resolved]

NARRATIVE: CASE EVENT DATE: 20190503
